FAERS Safety Report 14147607 (Version 1)
Quarter: 2017Q4

REPORT INFORMATION
  Report Type: Spontaneous
  Country: US (occurrence: US)
  Receive Date: 20171031
  Receipt Date: 20171031
  Transmission Date: 20180321
  Serious: No
  Sender: FDA-Public Use
  Company Number: US-ROMARKLABS-2016-US-000065

PATIENT
  Age: 57 Year
  Sex: Female

DRUGS (3)
  1. NO DRUG NAME [Suspect]
     Active Substance: UNSPECIFIED INGREDIENT
     Indication: HELICOBACTER INFECTION
     Route: 048
     Dates: start: 20160715, end: 20160725
  2. ALINIA [Suspect]
     Active Substance: NITAZOXANIDE
     Indication: HELICOBACTER INFECTION
     Dosage: 1 TABLET TWICE DAILY
     Route: 048
     Dates: start: 20160715, end: 20160725
  3. NO DRUG NAME [Suspect]
     Active Substance: UNSPECIFIED INGREDIENT
     Indication: HELICOBACTER INFECTION
     Route: 048
     Dates: start: 20160715, end: 20160725

REACTIONS (5)
  - Wrong technique in product usage process [None]
  - Palpitations [Recovered/Resolved]
  - Dizziness [Recovered/Resolved]
  - Chromaturia [Unknown]
  - Asthenia [Recovered/Resolved]

NARRATIVE: CASE EVENT DATE: 20160715
